FAERS Safety Report 21841704 (Version 1)
Quarter: 2023Q1

REPORT INFORMATION
  Report Type: Spontaneous
  Country: US (occurrence: US)
  Receive Date: 20230110
  Receipt Date: 20230110
  Transmission Date: 20230417
  Serious: No
  Sender: FDA-Public Use
  Company Number: US-PBT-006396

PATIENT

DRUGS (2)
  1. RIZATRIPTAN [Suspect]
     Active Substance: RIZATRIPTAN
     Indication: Product used for unknown indication
     Route: 065
  2. MANOCHLOR [Concomitant]
     Indication: Product used for unknown indication
     Route: 065

REACTIONS (4)
  - Product odour abnormal [Unknown]
  - Product taste abnormal [Unknown]
  - Product appearance confusion [Unknown]
  - Drug ineffective [Unknown]
